FAERS Safety Report 22005295 (Version 1)
Quarter: 2023Q1

REPORT INFORMATION
  Report Type: Spontaneous
  Country: AU (occurrence: AU)
  Receive Date: 20230217
  Receipt Date: 20230217
  Transmission Date: 20230418
  Serious: Yes (Other)
  Sender: FDA-Public Use
  Company Number: AU-Atnahs Limited-ATNAHS20230200438

PATIENT
  Age: 59 Year
  Sex: Male

DRUGS (6)
  1. DIAZEPAM [Suspect]
     Active Substance: DIAZEPAM
     Indication: Agitation
     Route: 050
  2. DROPERIDOL [Suspect]
     Active Substance: DROPERIDOL
     Indication: Agitation
     Route: 050
  3. TRAMADOL [Suspect]
     Active Substance: TRAMADOL
     Indication: Pain
  4. TRAMADOL [Suspect]
     Active Substance: TRAMADOL
     Indication: Product used for unknown indication
  5. TRAMADOL [Suspect]
     Active Substance: TRAMADOL
     Route: 050
  6. LORAZEPAM [Suspect]
     Active Substance: LORAZEPAM
     Indication: Agitation
     Route: 050

REACTIONS (3)
  - Drug withdrawal syndrome [Recovered/Resolved]
  - Overdose [Unknown]
  - Therapy non-responder [Unknown]
